FAERS Safety Report 11455141 (Version 2)
Quarter: 2015Q4

REPORT INFORMATION
  Report Type: Report from Study
  Country: PA (occurrence: PA)
  Receive Date: 20150903
  Receipt Date: 20151128
  Transmission Date: 20160304
  Serious: Yes (Hospitalization)
  Sender: FDA-Public Use
  Company Number: PHHY2015PA106408

PATIENT
  Age: 10 Year
  Sex: Male

DRUGS (2)
  1. EXJADE [Suspect]
     Active Substance: DEFERASIROX
     Dosage: 500 MG, QD
     Route: 065
  2. EXJADE [Suspect]
     Active Substance: DEFERASIROX
     Indication: PRODUCT USED FOR UNKNOWN INDICATION
     Dosage: 1000 MG, QD
     Route: 065

REACTIONS (5)
  - Infection [Unknown]
  - Drug intolerance [Unknown]
  - Abdominal discomfort [Unknown]
  - Blood iron increased [Unknown]
  - Gastritis [Unknown]
